FAERS Safety Report 6897435-4 (Version None)
Quarter: 2010Q3

REPORT INFORMATION
  Report Type: 
  Country: None (occurrence: None)
  Receive Date: 20100802
  Receipt Date: 20070615
  Transmission Date: 20110219
  Serious: No
  Sender: FDA-Public Use
  Company Number: US-PFIZER INC-2007028018

PATIENT
  Sex: Female
  Weight: 63.5 kg

DRUGS (9)
  1. LYRICA [Suspect]
     Indication: DIABETIC NEUROPATHY
     Dosage: 50 MG, 3X/DAY
     Dates: start: 20061101
  2. PRAVASTATIN SODIUM [Concomitant]
     Dosage: UNK
  3. ZETIA [Concomitant]
     Dosage: UNK
  4. INSULIN GLARGINE [Concomitant]
     Dosage: UNK
  5. AMARYL [Concomitant]
     Dosage: UNK
  6. BENICAR [Concomitant]
     Dosage: UNK
  7. CLONIDINE [Concomitant]
     Dosage: UNK
  8. LEVOXYL [Concomitant]
     Dosage: UNK
  9. ACETYLSALICYLIC ACID SRT [Concomitant]
     Dosage: 81 MG, UNK

REACTIONS (2)
  - ASTHENIA [None]
  - FEELING ABNORMAL [None]
